FAERS Safety Report 8259921-4 (Version None)
Quarter: 2012Q2

REPORT INFORMATION
  Report Type: 
  Country: None (occurrence: None)
  Receive Date: 20120402
  Receipt Date: 20120329
  Transmission Date: 20120825
  Serious: Yes (Hospitalization, Other)
  Sender: FDA-Public Use
  Company Number: ADR-2011-11179

PATIENT
  Sex: Female

DRUGS (1)
  1. LIORESAL [Suspect]
     Indication: MUSCLE SPASTICITY
     Dosage: 444 MCG, DAILY, INTRATH
     Route: 037

REACTIONS (4)
  - MEDICAL DEVICE COMPLICATION [None]
  - CATHETER SITE RELATED REACTION [None]
  - MASS [None]
  - PAIN [None]
